FAERS Safety Report 24222763 (Version 1)
Quarter: 2024Q3

REPORT INFORMATION
  Report Type: Spontaneous
  Country: CN (occurrence: CN)
  Receive Date: 20240819
  Receipt Date: 20240819
  Transmission Date: 20241017
  Serious: Yes (Hospitalization, Other)
  Sender: PFIZER
  Company Number: CN-PFIZER INC-202400236460

PATIENT
  Age: 60 Year
  Sex: Male

DRUGS (1)
  1. ANTIHEMOPHILIC FACTOR, HUMAN RECOMBINANT RESIDUES 743-1636 DELETED [Suspect]
     Active Substance: ANTIHEMOPHILIC FACTOR, HUMAN RECOMBINANT RESIDUES 743-1636 DELETED
     Indication: Factor VIII deficiency
     Dosage: UNK, 2X/WEEK

REACTIONS (4)
  - Iron deficiency anaemia [Unknown]
  - Subcutaneous haematoma [Unknown]
  - Haemophilic arthropathy [Unknown]
  - Pulmonary tuberculosis [Unknown]
